FAERS Safety Report 8280339-2 (Version None)
Quarter: 2012Q2

REPORT INFORMATION
  Report Type: 
  Country: None (occurrence: None)
  Receive Date: 20120412
  Receipt Date: 20110926
  Transmission Date: 20120825
  Serious: No
  Sender: FDA-Public Use
  Company Number: US-ASTRAZENECA-2009SE15003

PATIENT
  Age: 64 Year
  Sex: Male
  Weight: 79.8 kg

DRUGS (12)
  1. NEXIUM [Suspect]
     Indication: GASTROOESOPHAGEAL REFLUX DISEASE
     Route: 048
  2. PREVACID [Suspect]
     Route: 065
  3. NEXIUM [Suspect]
     Indication: GASTRITIS
     Route: 048
  4. NEXIUM [Suspect]
     Indication: DUODENAL ULCER
     Route: 048
  5. NEXIUM [Suspect]
     Indication: BARRETT'S OESOPHAGUS
     Route: 048
  6. VALIUM [Concomitant]
     Indication: ANXIETY
  7. NEXIUM [Suspect]
     Route: 048
     Dates: start: 19910101
  8. NASCOBAL [Concomitant]
  9. NEXIUM [Suspect]
     Route: 048
     Dates: start: 19910101
  10. NEXIUM [Suspect]
     Route: 048
     Dates: start: 19910101
  11. NEXIUM [Suspect]
     Route: 048
     Dates: start: 19910101
  12. VALIUM [Concomitant]
     Indication: TINNITUS

REACTIONS (14)
  - ANXIETY [None]
  - VITAMIN B12 DEFICIENCY [None]
  - GASTRITIS [None]
  - BARRETT'S OESOPHAGUS [None]
  - OSTEOPENIA [None]
  - TINNITUS [None]
  - HEADACHE [None]
  - DRUG DOSE OMISSION [None]
  - DYSPEPSIA [None]
  - MUSCLE SPASMS [None]
  - VITAMIN D DEFICIENCY [None]
  - DUODENAL ULCER [None]
  - GASTRIC ULCER [None]
  - SLEEP DISORDER [None]
